FAERS Safety Report 18660466 (Version 1)
Quarter: 2020Q4

REPORT INFORMATION
  Report Type: Spontaneous
  Country: US (occurrence: US)
  Receive Date: 20201224
  Receipt Date: 20201224
  Transmission Date: 20210114
  Serious: Yes (Hospitalization, Other)
  Sender: FDA-Public Use
  Company Number: US-NOVOPROD-775958

PATIENT
  Sex: Male

DRUGS (1)
  1. OZEMPIC [Suspect]
     Active Substance: SEMAGLUTIDE
     Indication: PRODUCT USED FOR UNKNOWN INDICATION
     Dosage: UNK
     Route: 058
     Dates: start: 2019

REACTIONS (3)
  - Injection site extravasation [Not Recovered/Not Resolved]
  - Pneumonia [Unknown]
  - Laryngeal cancer [Not Recovered/Not Resolved]

NARRATIVE: CASE EVENT DATE: 2019
